FAERS Safety Report 22386530 (Version 2)
Quarter: 2023Q2

REPORT INFORMATION
  Report Type: Spontaneous
  Country: HU (occurrence: HU)
  Receive Date: 20230531
  Receipt Date: 20230606
  Transmission Date: 20230722
  Serious: Yes (Hospitalization)
  Sender: FDA-Public Use
  Company Number: HU-BoehringerIngelheim-2023-BI-239877

PATIENT
  Age: 64 Year
  Sex: Male
  Weight: 94 kg

DRUGS (6)
  1. SYNJARDY [Suspect]
     Active Substance: EMPAGLIFLOZIN\METFORMIN HYDROCHLORIDE
     Indication: Cardiac disorder
     Dosage: 2X5MG/1000MG
  2. SYNJARDY [Suspect]
     Active Substance: EMPAGLIFLOZIN\METFORMIN HYDROCHLORIDE
     Dosage: HALVING TABLET TO OBTAIN 2X2,5MG/500MG EMPAGLIFLOZIN-METFORMIN
     Dates: start: 202304
  3. INSULIN ASPART [Concomitant]
     Active Substance: INSULIN ASPART
     Indication: Product used for unknown indication
     Dosage: 8-7-8 IU
     Dates: end: 202208
  4. INSULIN DEGLUDEC [Concomitant]
     Active Substance: INSULIN DEGLUDEC
     Indication: Product used for unknown indication
     Dosage: IN THE EVENING
     Dates: end: 202208
  5. human regural insulin [Concomitant]
     Indication: Product used for unknown indication
     Dosage: 20-14-18 IU
     Dates: start: 202208
  6. NPH INSULIN [Concomitant]
     Active Substance: INSULIN BEEF
     Indication: Product used for unknown indication
     Dosage: AT NIGHT
     Dates: start: 202208

REACTIONS (3)
  - Duodenal ulcer [Recovered/Resolved]
  - Weight decreased [Recovered/Resolved]
  - Wrong technique in product usage process [Unknown]

NARRATIVE: CASE EVENT DATE: 20211001
